FAERS Safety Report 14425727 (Version 1)
Quarter: 2018Q1

REPORT INFORMATION
  Report Type: Spontaneous
  Country: FR (occurrence: FR)
  Receive Date: 20180123
  Receipt Date: 20180123
  Transmission Date: 20180509
  Serious: Yes (Death)
  Sender: FDA-Public Use
  Company Number: FR-TEVA-2018-FR-847388

PATIENT
  Age: 42 Year
  Sex: Female

DRUGS (1)
  1. TRAMADOL. [Suspect]
     Active Substance: TRAMADOL
     Route: 048
     Dates: start: 201710, end: 201710

REACTIONS (2)
  - Cardiogenic shock [Fatal]
  - Coma [Fatal]

NARRATIVE: CASE EVENT DATE: 20171022
